FAERS Safety Report 4751356-1 (Version None)
Quarter: 2005Q3

REPORT INFORMATION
  Report Type: 
  Country: None (occurrence: None)
  Receive Date: 20050822
  Receipt Date: 20050805
  Transmission Date: 20060218
  Serious: Yes (Hospitalization)
  Sender: FDA-Public Use
  Company Number: 2005PV000741

PATIENT
  Age: 74 Year
  Sex: Male
  Weight: 88.4514 kg

DRUGS (10)
  1. BYETTA [Suspect]
     Indication: DIABETES MELLITUS NON-INSULIN-DEPENDENT
     Dosage: 5 MCG;BID;SC
     Route: 058
     Dates: start: 20050712, end: 20050722
  2. VASOTEC RPD [Suspect]
     Indication: PROPHYLAXIS
     Dosage: 2.5 MG;QOD;PO
     Route: 048
     Dates: end: 20050701
  3. VASOTEC RPD [Suspect]
     Indication: RENAL DISORDER
     Dosage: 2.5 MG;QOD;PO
     Route: 048
     Dates: end: 20050701
  4. ZESTRIL [Suspect]
     Indication: HYPERTENSION
     Dosage: 30 MG;QD;PO
     Route: 048
     Dates: end: 20050701
  5. LASIX [Suspect]
     Dosage: 40 MG;BID;PO
     Route: 048
  6. DIABETA [Concomitant]
  7. GLUCOPHAGE [Concomitant]
  8. AVANDIA [Concomitant]
  9. MICRONASE [Concomitant]
  10. ALBUTEROL [Concomitant]

REACTIONS (7)
  - ANOREXIA [None]
  - HYPERKALAEMIA [None]
  - HYPOXIA [None]
  - NAUSEA [None]
  - PALLOR [None]
  - PLEURAL FIBROSIS [None]
  - RENAL FAILURE ACUTE [None]
